FAERS Safety Report 14732783 (Version 10)
Quarter: 2019Q4

REPORT INFORMATION
  Report Type: Report from Study
  Country: AU (occurrence: AU)
  Receive Date: 20180409
  Receipt Date: 20191126
  Transmission Date: 20200122
  Serious: Yes (Hospitalization)
  Sender: FDA-Public Use
  Company Number: AU-ROCHE-2101574

PATIENT
  Age: 70 Year
  Sex: Male
  Weight: 84 kg

DRUGS (16)
  1. BLINDED ATEZOLIZUMAB [Suspect]
     Active Substance: ATEZOLIZUMAB
     Indication: MALIGNANT MELANOMA
     Dosage: DATE OF MOST RECENT DOSE OF BLINDED ATEZOLIZUMAB PRIOR TO SECOND EPISODE OF ATRIAL FIBRILLATION ONSE
     Route: 042
     Dates: start: 20171227
  2. VEMURAFENIB. [Suspect]
     Active Substance: VEMURAFENIB
     Indication: MALIGNANT MELANOMA
     Dosage: DATE OF MOST RECENT DOSE (3 TABLETS) OF VEMURAFENIB PRIOR TO SECOND EPISODE OF ATRIAL FIBRILLATION O
     Route: 048
     Dates: start: 20171127
  3. COBIMETINIB. [Suspect]
     Active Substance: COBIMETINIB
     Indication: MALIGNANT MELANOMA
     Dosage: DOSE OF LAST COBIMETINIB  60 MG ADMINISTERED PRIOR TO SAE ONSET ON 16/JAN/2018 OF FIRST EPISODE OF A
     Route: 048
     Dates: start: 20171127
  4. METOPROLOL. [Concomitant]
     Active Substance: METOPROLOL
     Indication: ATRIAL FIBRILLATION
     Route: 048
     Dates: start: 20180202, end: 20180402
  5. KEFLEX [Concomitant]
     Active Substance: CEPHALEXIN
     Indication: WOUND INFECTION
     Route: 048
     Dates: start: 20171204, end: 20171211
  6. APIXABAN [Concomitant]
     Active Substance: APIXABAN
     Route: 048
  7. IBUPROFEN. [Concomitant]
     Active Substance: IBUPROFEN
     Indication: HEADACHE
     Route: 048
     Dates: start: 20180314, end: 20180314
  8. KRILL OIL [Concomitant]
     Active Substance: DIETARY SUPPLEMENT\KRILL OIL
     Route: 048
  9. LORATADINE. [Concomitant]
     Active Substance: LORATADINE
     Indication: INFUSION RELATED REACTION
     Route: 048
     Dates: start: 20180402
  10. IBUPROFEN. [Concomitant]
     Active Substance: IBUPROFEN
     Indication: MYALGIA
     Route: 048
     Dates: start: 20171227
  11. METOPROLOL. [Concomitant]
     Active Substance: METOPROLOL
     Route: 048
     Dates: start: 20180403, end: 20180412
  12. METOPROLOL. [Concomitant]
     Active Substance: METOPROLOL
     Route: 048
  13. HYDROCORTISONE. [Concomitant]
     Active Substance: HYDROCORTISONE
     Indication: INFUSION RELATED REACTION
     Route: 042
     Dates: start: 20180319, end: 20180319
  14. APIXABAN [Concomitant]
     Active Substance: APIXABAN
     Indication: ATRIAL FIBRILLATION
     Route: 048
     Dates: start: 20180203
  15. TAZOCIN [Concomitant]
     Active Substance: PIPERACILLIN SODIUM\TAZOBACTAM SODIUM
     Indication: SEPSIS
     Route: 042
     Dates: start: 20180403, end: 20180403
  16. DIAZEPAM. [Concomitant]
     Active Substance: DIAZEPAM
     Route: 065
     Dates: start: 20180202, end: 20180202

REACTIONS (2)
  - Atrial fibrillation [Recovered/Resolved]
  - Ejection fraction decreased [Recovered/Resolved]

NARRATIVE: CASE EVENT DATE: 20171221
